FAERS Safety Report 16077912 (Version 2)
Quarter: 2019Q2

REPORT INFORMATION
  Report Type: Spontaneous
  Country: US (occurrence: US)
  Receive Date: 20190315
  Receipt Date: 20190524
  Transmission Date: 20190711
  Serious: No
  Sender: FDA-Public Use
  Company Number: US-PFIZER INC-2019112069

PATIENT
  Age: 66 Year
  Sex: Female

DRUGS (1)
  1. EUCRISA [Suspect]
     Active Substance: CRISABOROLE
     Indication: ECZEMA
     Dosage: UNK, 1X/DAY (APPLY ONCE DAILY)
     Route: 061
     Dates: start: 20190228

REACTIONS (1)
  - Application site pain [Recovering/Resolving]
